FAERS Safety Report 6644237-X (Version None)
Quarter: 2010Q1

REPORT INFORMATION
  Report Type: 
  Country: None (occurrence: None)
  Receive Date: 20100317
  Receipt Date: 20100304
  Transmission Date: 20100710
  Serious: Yes (Death, Hospitalization)
  Sender: FDA-Public Use
  Company Number: 1000012174

PATIENT
  Age: 41 Year
  Sex: Male
  Weight: 86 kg

DRUGS (1)
  1. CARBAMAZEPINE [Suspect]
     Indication: EPILEPSY

REACTIONS (13)
  - CARDIAC ARREST [None]
  - CARDIAC FAILURE [None]
  - CARDIOGENIC SHOCK [None]
  - CARDIOMEGALY [None]
  - EOSINOPHILIC MYOCARDITIS [None]
  - HEPATOSPLENOMEGALY [None]
  - HYPERSENSITIVITY [None]
  - LOWER RESPIRATORY TRACT INFECTION [None]
  - PULMONARY CONGESTION [None]
  - PULMONARY OEDEMA [None]
  - STEVENS-JOHNSON SYNDROME [None]
  - TACHYARRHYTHMIA [None]
  - TACHYCARDIA [None]
